FAERS Safety Report 8068773-7 (Version None)
Quarter: 2012Q1

REPORT INFORMATION
  Report Type: 
  Country: None (occurrence: None)
  Receive Date: 20120124
  Receipt Date: 20111221
  Transmission Date: 20120608
  Serious: No
  Sender: FDA-Public Use
  Company Number: US-AMGEN-USASP2011060482

PATIENT
  Age: 87 Year
  Sex: Female

DRUGS (10)
  1. LIPITOR [Concomitant]
     Dosage: 1 MG, UNK
  2. SYNTHROID [Concomitant]
     Dosage: 1 MUG, UNK
  3. ASPIRIN [Concomitant]
     Dosage: 1 MG, UNK
  4. COZAAR [Concomitant]
     Dosage: 1 MG, UNK
  5. PERCOCET [Concomitant]
     Dosage: UNK
  6. COREG [Concomitant]
     Dosage: 2 MG, UNK
  7. MULTI-VITAMINS [Concomitant]
     Dosage: 1 UNK, UNK
  8. PROLIA [Suspect]
     Indication: OSTEOPOROSIS POSTMENOPAUSAL
     Dosage: 60 MG, Q6MO
     Dates: start: 20110527
  9. ACIPHEX [Concomitant]
     Dosage: 1 MG, UNK
  10. CALCIUM [Concomitant]

REACTIONS (2)
  - INJECTION SITE ERYTHEMA [None]
  - INJECTION SITE SWELLING [None]
